FAERS Safety Report 6377055-0 (Version None)
Quarter: 2009Q3

REPORT INFORMATION
  Report Type: 
  Country: None (occurrence: None)
  Receive Date: 20090916
  Receipt Date: 20090916
  Transmission Date: 20100115
  Serious: Yes (Life-Threatening)
  Sender: FDA-Public Use
  Company Number: None

PATIENT
  Age: 92 Year
  Sex: Female
  Weight: 70.3075 kg

DRUGS (2)
  1. OFLOXACIN [Suspect]
     Indication: HORDEOLUM
     Dosage: 1 DROP 4 TIMES DAILY ABOUT 10 DAYS OR 2 WEEKS
     Dates: start: 20090515
  2. OFLOXACIN [Suspect]
     Indication: INFECTION
     Dosage: 1 DROP 4 TIMES DAILY ABOUT 10 DAYS OR 2 WEEKS
     Dates: start: 20090515

REACTIONS (2)
  - FEELING ABNORMAL [None]
  - INJURY [None]
